FAERS Safety Report 13031643 (Version 1)
Quarter: 2016Q4

REPORT INFORMATION
  Report Type: Report from Study
  Country: US (occurrence: US)
  Receive Date: 20161215
  Receipt Date: 20161215
  Transmission Date: 20170207
  Serious: Yes (Hospitalization, Other)
  Sender: FDA-Public Use
  Company Number: US-AMGEN-USASL2016173803

PATIENT
  Age: 52 Year
  Sex: Female

DRUGS (3)
  1. ENBREL [Suspect]
     Active Substance: ETANERCEPT
     Dosage: 50 MG, QWK
     Route: 065
     Dates: start: 201611
  2. ENBREL [Suspect]
     Active Substance: ETANERCEPT
     Dosage: 50 MG, UNK
     Route: 065
     Dates: start: 2013, end: 2013
  3. ENBREL [Suspect]
     Active Substance: ETANERCEPT
     Indication: RHEUMATOID ARTHRITIS
     Dosage: 50 MG, UNK
     Route: 065
     Dates: start: 200706, end: 2012

REACTIONS (8)
  - Rheumatoid arthritis [Unknown]
  - Myalgia [Unknown]
  - Breast cancer recurrent [Recovering/Resolving]
  - Mobility decreased [Unknown]
  - Breast neoplasm [Recovering/Resolving]
  - Musculoskeletal disorder [Unknown]
  - Neuralgia [Unknown]
  - Hand deformity [Unknown]

NARRATIVE: CASE EVENT DATE: 2012
